FAERS Safety Report 18242560 (Version 1)
Quarter: 2020Q3

REPORT INFORMATION
  Report Type: Spontaneous
  Country: US (occurrence: US)
  Receive Date: 20200908
  Receipt Date: 20200908
  Transmission Date: 20201103
  Serious: Yes (Death, Hospitalization, Disabling, Other)
  Sender: FDA-Public Use
  Company Number: US-PURDUE-USA-2020-0165004

PATIENT
  Sex: Female

DRUGS (1)
  1. HYDROCODONE BITARTRATE AND ACETAMINOPHEN [Suspect]
     Active Substance: ACETAMINOPHEN\HYDROCODONE BITARTRATE
     Indication: PRODUCT USED FOR UNKNOWN INDICATION
     Dosage: UNK
     Route: 048
     Dates: start: 2000

REACTIONS (16)
  - Amnesia [Unknown]
  - Acute kidney injury [Fatal]
  - Myocardial infarction [Fatal]
  - Withdrawal syndrome [Unknown]
  - Metabolic encephalopathy [Fatal]
  - Pneumonia aspiration [Fatal]
  - Coma [Unknown]
  - Wrong dosage form [Unknown]
  - Acute respiratory failure [Fatal]
  - Acute hepatic failure [Fatal]
  - Disability [Unknown]
  - Vomiting [Unknown]
  - Cholecystitis acute [Fatal]
  - Loss of consciousness [Unknown]
  - Diarrhoea [Unknown]
  - Drug dependence [Unknown]

NARRATIVE: CASE EVENT DATE: 20180115
